FAERS Safety Report 5125024-0 (Version None)
Quarter: 2006Q4

REPORT INFORMATION
  Report Type: 
  Country: None (occurrence: None)
  Receive Date: 20061011
  Receipt Date: 20060929
  Transmission Date: 20070319
  Serious: Yes (Other)
  Sender: FDA-Public Use
  Company Number: PHBS2006BR15099

PATIENT
  Age: 87 Year
  Sex: Female

DRUGS (2)
  1. HYDERGINE [Suspect]
     Indication: MENTAL IMPAIRMENT
     Dosage: 4.5 MG, QD
     Route: 048
  2. DIABINESE [Concomitant]
     Indication: DIABETES MELLITUS

REACTIONS (1)
  - OVARIAN NEOPLASM [None]
